FAERS Safety Report 5952802-8 (Version None)
Quarter: 2008Q4

REPORT INFORMATION
  Report Type: 
  Country: None (occurrence: None)
  Receive Date: 20081114
  Receipt Date: 20081112
  Transmission Date: 20090506
  Serious: Yes (Hospitalization)
  Sender: FDA-Public Use
  Company Number: KR-JNJFOC-20081101367

PATIENT
  Sex: Male
  Weight: 75.5 kg

DRUGS (5)
  1. SPORANOX [Suspect]
     Route: 042
  2. SPORANOX [Suspect]
     Indication: FEBRILE NEUTROPENIA
     Route: 042
  3. AMIKACIN [Concomitant]
     Indication: FEBRILE NEUTROPENIA
     Route: 042
  4. FLUNAZOLE [Concomitant]
     Indication: FEBRILE NEUTROPENIA
     Route: 048
  5. PREPENEM [Concomitant]
     Indication: FEBRILE NEUTROPENIA
     Route: 042

REACTIONS (1)
  - HYPERBILIRUBINAEMIA [None]
